FAERS Safety Report 6730180-4 (Version None)
Quarter: 2010Q2

REPORT INFORMATION
  Report Type: 
  Country: None (occurrence: None)
  Receive Date: 20100518
  Receipt Date: 20100505
  Transmission Date: 20101027
  Serious: Yes (Other)
  Sender: FDA-Public Use
  Company Number: US-JNJFOC-20100504291

PATIENT
  Age: 5 Year
  Sex: Male
  Weight: 22.23 kg

DRUGS (6)
  1. CHILDREN'S MOTRIN [Suspect]
     Indication: HEADACHE
     Route: 048
  2. CHILDREN'S MOTRIN [Suspect]
     Indication: PAIN
     Route: 048
  3. CHILDREN'S MOTRIN [Suspect]
     Indication: PYREXIA
     Route: 048
  4. CHILDREN'S TYLENOL SUSPENSION [Suspect]
     Indication: PYREXIA
     Route: 048
  5. CHILDREN'S TYLENOL SUSPENSION [Suspect]
     Indication: PAIN
     Route: 048
  6. CHILDREN'S TYLENOL SUSPENSION [Suspect]
     Indication: MULTIPLE ALLERGIES
     Route: 048

REACTIONS (3)
  - DIARRHOEA [None]
  - PRODUCT QUALITY ISSUE [None]
  - VOMITING [None]
